FAERS Safety Report 7759823-3 (Version None)
Quarter: 2011Q3

REPORT INFORMATION
  Report Type: 
  Country: None (occurrence: None)
  Receive Date: 20110919
  Receipt Date: 20110908
  Transmission Date: 20111222
  Serious: Yes (Other)
  Sender: FDA-Public Use
  Company Number: DE-UCBSA-039706

PATIENT
  Sex: Male
  Weight: 49 kg

DRUGS (5)
  1. KEPPRA [Suspect]
     Dosage: 500 MG 1/2 DOSE
     Route: 048
     Dates: start: 20110801, end: 20110801
  2. BUDIAIR [Concomitant]
     Dates: start: 20090101
  3. ALBUTEROL [Concomitant]
     Dates: start: 20020101
  4. SINGULAIR JUNIOR [Concomitant]
     Route: 048
     Dates: start: 20040101
  5. OSPOLOT [Concomitant]
     Route: 048
     Dates: start: 20090101

REACTIONS (2)
  - ANAPHYLACTIC SHOCK [None]
  - EXPIRED DRUG ADMINISTERED [None]
